FAERS Safety Report 7579834-0 (Version None)
Quarter: 2011Q2

REPORT INFORMATION
  Report Type: 
  Country: None (occurrence: None)
  Receive Date: 20110623
  Receipt Date: 20110609
  Transmission Date: 20111010
  Serious: Yes (Hospitalization)
  Sender: FDA-Public Use
  Company Number: 2011SP024663

PATIENT
  Sex: Female

DRUGS (3)
  1. SEROQUEL [Suspect]
     Indication: DRUG EXPOSURE DURING PREGNANCY
     Dosage: ; QD; TRPL
     Route: 064
     Dates: start: 20100830, end: 20101021
  2. MIRTAZAPINE [Suspect]
     Indication: DRUG EXPOSURE DURING PREGNANCY
     Dosage: ; BID; TRPL
     Route: 064
     Dates: start: 20100506, end: 20100830
  3. CYMBALTA [Suspect]
     Indication: DRUG EXPOSURE DURING PREGNANCY
     Dosage: ; BID; TRPL
     Route: 064
     Dates: start: 20100115, end: 20101021

REACTIONS (2)
  - MATERNAL DRUGS AFFECTING FOETUS [None]
  - NEONATAL ASPIRATION [None]
